FAERS Safety Report 15781760 (Version 1)
Quarter: 2018Q4

REPORT INFORMATION
  Report Type: Spontaneous
  Country: US (occurrence: US)
  Receive Date: 20181212
  Receipt Date: 20181212
  Transmission Date: 20190205
  Serious: Yes (Hospitalization)
  Sender: FDA-Public Use
  Company Number: None

PATIENT
  Age: 78 Year
  Sex: Female
  Weight: 46 kg

DRUGS (3)
  1. CARBOPLATIN. [Suspect]
     Active Substance: CARBOPLATIN
     Dates: end: 20060201
  2. TAXOL [Suspect]
     Active Substance: PACLITAXEL
     Dates: end: 20160201
  3. METFORMIN HYDROCHLORIDE. [Suspect]
     Active Substance: METFORMIN HYDROCHLORIDE
     Dates: end: 20151123

REACTIONS (2)
  - Anaemia [None]
  - Myelodysplastic syndrome [None]

NARRATIVE: CASE EVENT DATE: 20170823
